FAERS Safety Report 25075135 (Version 1)
Quarter: 2025Q1

REPORT INFORMATION
  Report Type: Other
  Country: IN (occurrence: IN)
  Receive Date: 20250313
  Receipt Date: 20250313
  Transmission Date: 20250408
  Serious: Yes (Death, Other)
  Sender: NUVO PHARMACEUTICALS
  Company Number: IN-Nuvo Pharmaceuticals Inc-2172822

PATIENT
  Age: 51 Year
  Sex: Male

DRUGS (8)
  1. SULFASALAZINE [Suspect]
     Active Substance: SULFASALAZINE
     Indication: Rheumatoid arthritis
  2. HYDROXYCHLOROQUINE SULFATE [Suspect]
     Active Substance: HYDROXYCHLOROQUINE SULFATE
  3. CALAMINE [Concomitant]
     Active Substance: CALAMINE\FERRIC OXIDE RED\ZINC OXIDE
  4. LOPERAMIDE HYDROCHLORIDE [Concomitant]
     Active Substance: LOPERAMIDE HYDROCHLORIDE
  5. AZITHROMYCIN ANHYDROUS [Concomitant]
     Active Substance: AZITHROMYCIN ANHYDROUS
  6. PREDNISOLONE [Suspect]
     Active Substance: PREDNISOLONE
  7. METHOTREXATE [Suspect]
     Active Substance: METHOTREXATE
  8. LEFLUNOMIDE [Suspect]
     Active Substance: LEFLUNOMIDE

REACTIONS (6)
  - Multiple organ dysfunction syndrome [Fatal]
  - Product use in unapproved indication [Unknown]
  - Drug reaction with eosinophilia and systemic symptoms [Fatal]
  - Toxic epidermal necrolysis [Fatal]
  - Acute kidney injury [Fatal]
  - Neutropenic sepsis [Fatal]
